FAERS Safety Report 9861805 (Version 2)
Quarter: 2014Q1

REPORT INFORMATION
  Report Type: Spontaneous
  Country: US (occurrence: US)
  Receive Date: 20140203
  Receipt Date: 20140203
  Transmission Date: 20141002
  Serious: No
  Sender: FDA-Public Use
  Company Number: US-PFIZER INC-2012130636

PATIENT
  Age: 66 Year
  Sex: Female

DRUGS (18)
  1. SEPTRA [Suspect]
     Dosage: UNK
  2. SKELAXIN [Suspect]
     Dosage: UNK
  3. DOXYCYCLINE CALCIUM [Suspect]
     Dosage: UNK
  4. AMOXIL [Suspect]
     Dosage: UNK
  5. ASTELIN [Suspect]
     Dosage: UNK
  6. ATROVENT [Suspect]
     Dosage: UNK
  7. BUSPAR [Suspect]
     Dosage: UNK
  8. DILAUDID [Suspect]
     Dosage: UNK
  9. ELAVIL [Suspect]
     Dosage: UNK
  10. FLEXERIL [Suspect]
     Dosage: UNK
  11. LORCET [Suspect]
     Dosage: UNK
  12. LORTAB [Suspect]
     Dosage: UNK
  13. MOBIC [Suspect]
     Dosage: UNK
  14. NUBAIN [Suspect]
     Dosage: UNK
  15. REGLAN [Suspect]
     Dosage: UNK
  16. ULTRAM [Suspect]
     Dosage: UNK
  17. AMITRIPTYLINE [Suspect]
     Dosage: UNK
  18. CRANBERRY [Suspect]
     Dosage: UNK

REACTIONS (1)
  - Drug hypersensitivity [Unknown]
